FAERS Safety Report 13814491 (Version 1)
Quarter: 2017Q3

REPORT INFORMATION
  Report Type: Report from Study
  Country: IT (occurrence: IT)
  Receive Date: 20170731
  Receipt Date: 20170731
  Transmission Date: 20171127
  Serious: Yes (Other)
  Sender: FDA-Public Use
  Company Number: IT-TEVA-789142ACC

PATIENT
  Age: 19 Year
  Sex: Male

DRUGS (2)
  1. SERTRALINE HYDROCHLORIDE. [Suspect]
     Active Substance: SERTRALINE HYDROCHLORIDE
     Indication: DEPRESSION
     Dosage: 1 DOSAGE FORMS DAILY;
     Route: 048
     Dates: start: 20170708, end: 20170708
  2. XANAX [Interacting]
     Active Substance: ALPRAZOLAM
     Indication: ANXIETY
     Dosage: 1 DOSAGE FORMS DAILY;
     Route: 048
     Dates: start: 20170708, end: 20170708

REACTIONS (6)
  - Mydriasis [Recovering/Resolving]
  - Euphoric mood [Recovering/Resolving]
  - Alcohol interaction [Recovering/Resolving]
  - Drug abuse [Unknown]
  - Substance abuse [Recovering/Resolving]
  - Urinary incontinence [Recovering/Resolving]

NARRATIVE: CASE EVENT DATE: 20170708
